FAERS Safety Report 8567664-2 (Version None)
Quarter: 2012Q3

REPORT INFORMATION
  Report Type: 
  Country: None (occurrence: None)
  Receive Date: 20120803
  Receipt Date: 20120725
  Transmission Date: 20120928
  Serious: Yes (Hospitalization)
  Sender: FDA-Public Use
  Company Number: BR-ASTRAZENECA-2012SE52811

PATIENT
  Age: 76 Year
  Sex: Female
  Weight: 83 kg

DRUGS (2)
  1. NEXIUM [Suspect]
     Dosage: 40 MG, BID AS REQUIRED
     Route: 048
     Dates: start: 20070101
  2. NEXIUM [Suspect]
     Indication: GASTRITIS
     Route: 048
     Dates: start: 20070101

REACTIONS (6)
  - DACRYOSTENOSIS ACQUIRED [None]
  - DRUG INEFFECTIVE [None]
  - GASTRITIS [None]
  - FLATULENCE [None]
  - OFF LABEL USE [None]
  - ABDOMINAL PAIN [None]
